FAERS Safety Report 15584685 (Version 1)
Quarter: 2018Q4

REPORT INFORMATION
  Report Type: Spontaneous
  Country: AU (occurrence: AU)
  Receive Date: 20181105
  Receipt Date: 20181105
  Transmission Date: 20190205
  Serious: Yes (Other)
  Sender: FDA-Public Use
  Company Number: AU-ELI_LILLY_AND_COMPANY-AU201810014796

PATIENT
  Sex: Female

DRUGS (2)
  1. ZYPREXA RELPREVV [Suspect]
     Active Substance: OLANZAPINE PAMOATE
     Indication: AFFECTIVE DISORDER
     Dosage: 300 MG, MONTHLY (1/M); EVERY 4 WEEKLY
     Route: 030
     Dates: start: 2016
  2. FLUPENTIXOL [Concomitant]
     Active Substance: FLUPENTIXOL
     Indication: AFFECTIVE DISORDER
     Dosage: 50 MG, OTHER; EVERY 2 WEEKS
     Route: 065

REACTIONS (5)
  - Dizziness [Unknown]
  - Feeling abnormal [Unknown]
  - Vertigo [Unknown]
  - Fatigue [Unknown]
  - Breast cancer [Unknown]
